FAERS Safety Report 7276941 (Version 4)
Quarter: 2012Q4

REPORT INFORMATION
  Report Type: Report from Study
  Country: US (occurrence: US)
  Receive Date: 20100212
  Receipt Date: 20120831
  Transmission Date: 20130627
  Serious: Yes (Other)
  Sender: FDA-Public Use
  Company Number: US-BAXTER-2010BH002449

PATIENT
  Age: 57 Year
  Sex: Female
  Weight: 44 kg

DRUGS (14)
  1. ARICEPT [Concomitant]
     Indication: ALZHEIMER^S DISEASE
     Route: 048
     Dates: start: 200703
  2. NAMENDA [Concomitant]
     Indication: ALZHEIMER^S DISEASE
     Route: 048
     Dates: start: 200708
  3. SERTRALINE [Concomitant]
     Indication: DEPRESSION
     Route: 048
     Dates: start: 200805, end: 20090506
  4. MULTIVITAMINS [Concomitant]
     Indication: ROUTINE HEALTH MAINTENANCE
     Route: 048
     Dates: start: 2004
  5. FISH OIL [Concomitant]
     Indication: ROUTINE HEALTH MAINTENANCE
     Route: 048
     Dates: start: 200001, end: 20090315
  6. ADVIL [Concomitant]
     Indication: GENERAL DISCOMFORT
     Route: 048
     Dates: start: 199901
  7. CALCIUM [Concomitant]
     Indication: OSTEOPOROSIS PROPHYLAXIS
     Route: 048
     Dates: start: 200601, end: 200812
  8. METRONIDAZOLE [Concomitant]
     Indication: TOOTH ABSCESS
     Route: 048
     Dates: start: 20090615, end: 20090622
  9. AMOXICLAV [Concomitant]
     Indication: TOOTH ABSCESS
     Route: 048
     Dates: start: 20090615, end: 20090622
  10. PROZAC [Concomitant]
     Indication: DEPRESSION
     Route: 048
     Dates: start: 20090507, end: 20100128
  11. MIRTAZAPINE [Concomitant]
     Indication: DEPRESSION
     Route: 048
     Dates: start: 20100129
  12. GAMMAGARD LIQUID [Suspect]
     Indication: ALZHEIMER^S DISEASE
     Route: 042
     Dates: start: 20090526, end: 20090820
  13. GAMMAGARD LIQUID [Suspect]
     Route: 042
     Dates: start: 20090903, end: 20091028
  14. GAMMAGARD LIQUID [Suspect]
     Route: 042
     Dates: start: 20091111

REACTIONS (1)
  - Weight decreased [Recovered/Resolved]
